FAERS Safety Report 4268641-2 (Version None)
Quarter: 2004Q1

REPORT INFORMATION
  Report Type: 
  Country: None (occurrence: None)
  Receive Date: 20040112
  Receipt Date: 20030130
  Transmission Date: 20041129
  Serious: Yes (Hospitalization, Disabling)
  Sender: FDA-Public Use
  Company Number: WAES 0301USA03191

PATIENT
  Age: 51 Year
  Sex: Male
  Weight: 91 kg

DRUGS (3)
  1. ASPIRIN [Concomitant]
  2. PLAQUENIL [Concomitant]
  3. VIOXX [Suspect]
     Route: 048
     Dates: start: 19990101, end: 20000101

REACTIONS (9)
  - ARTHRITIS [None]
  - AUTOIMMUNE DISORDER [None]
  - CAROTID ARTERY ANEURYSM [None]
  - CATARACT [None]
  - CEREBRAL ISCHAEMIA [None]
  - CEREBROVASCULAR ACCIDENT [None]
  - LUNG NEOPLASM [None]
  - TRANSIENT ISCHAEMIC ATTACK [None]
  - VASCULITIS [None]
